FAERS Safety Report 7733674-8 (Version None)
Quarter: 2011Q3

REPORT INFORMATION
  Report Type: 
  Country: None (occurrence: None)
  Receive Date: 20110907
  Receipt Date: 20110829
  Transmission Date: 20111222
  Serious: Yes (Life-Threatening)
  Sender: FDA-Public Use
  Company Number: JP-JNJFOC-20110107050

PATIENT
  Age: 51 Year
  Sex: Male
  Weight: 110 kg

DRUGS (9)
  1. CYCLOSPORINE [Concomitant]
     Indication: PSORIASIS
     Route: 048
  2. REMICADE [Suspect]
     Route: 042
     Dates: start: 20100617
  3. REMICADE [Suspect]
     Route: 042
     Dates: start: 20100323
  4. REMICADE [Suspect]
     Route: 042
     Dates: start: 20100309
  5. BIOFERMIN [Concomitant]
     Indication: GASTROINTESTINAL DISORDER
     Route: 048
     Dates: start: 20100826, end: 20100909
  6. REMICADE [Suspect]
     Indication: PSORIASIS
     Dosage: TOTAL 5 INFUSION
     Route: 042
     Dates: start: 20100913
  7. ETRETINATE [Concomitant]
     Indication: PSORIASIS
     Route: 048
  8. REMICADE [Suspect]
     Route: 042
     Dates: start: 20100417
  9. STELARA [Suspect]
     Indication: PSORIASIS
     Route: 058
     Dates: start: 20090701, end: 20091001

REACTIONS (1)
  - LARGE INTESTINE CARCINOMA [None]
